FAERS Safety Report 9957543 (Version 1)
Quarter: 2014Q1

REPORT INFORMATION
  Report Type: Report from Study
  Country: US (occurrence: US)
  Receive Date: 20140304
  Receipt Date: 20140304
  Transmission Date: 20141002
  Serious: No
  Sender: FDA-Public Use
  Company Number: US-ABBVIE-13P-163-1092296-00

PATIENT
  Age: 70 Year
  Sex: Male
  Weight: 115.77 kg

DRUGS (17)
  1. HUMIRA [Suspect]
     Indication: RHEUMATOID ARTHRITIS
     Dates: start: 201203, end: 201204
  2. SYMBICORT [Concomitant]
     Indication: CHRONIC OBSTRUCTIVE PULMONARY DISEASE
  3. ALBUTEROL [Concomitant]
     Indication: CHRONIC OBSTRUCTIVE PULMONARY DISEASE
  4. OXYCODONE [Concomitant]
     Indication: PAIN
  5. METHOTREXATE [Concomitant]
     Indication: RHEUMATOID ARTHRITIS
  6. LEVOTHYROXINE [Concomitant]
     Indication: HYPOTHYROIDISM
  7. SERTRALINE [Concomitant]
     Indication: DEPRESSION
  8. FOLIC ACID [Concomitant]
     Indication: VITAMIN SUPPLEMENTATION
  9. OMEPRAZOLE [Concomitant]
     Indication: GASTROOESOPHAGEAL REFLUX DISEASE
  10. AMLODIPINE [Concomitant]
     Indication: HYPERTENSION
  11. GABAPENTIN [Concomitant]
     Indication: CONVULSION
  12. LOPRAMIDE [Concomitant]
     Indication: DIARRHOEA
  13. BUMEX [Concomitant]
     Indication: FLUID RETENTION
  14. MIDODRINE HYDROCHLORIDE [Concomitant]
     Indication: FLUID RETENTION
  15. METOLAZONE [Concomitant]
     Indication: FLUID RETENTION
  16. CARVEDILOL [Concomitant]
     Indication: CARDIAC FAILURE CONGESTIVE
  17. SPIRONOLACTONE [Concomitant]
     Indication: FLUID RETENTION

REACTIONS (2)
  - Somnolence [Not Recovered/Not Resolved]
  - Arthralgia [Not Recovered/Not Resolved]
